FAERS Safety Report 22324660 (Version 1)
Quarter: 2023Q2

REPORT INFORMATION
  Report Type: Spontaneous
  Country: JP (occurrence: JP)
  Receive Date: 20230516
  Receipt Date: 20230516
  Transmission Date: 20230722
  Serious: Yes (Other)
  Sender: FDA-Public Use
  Company Number: JP-SUN PHARMACEUTICAL INDUSTRIES LTD-2023RR-380537

PATIENT
  Age: 68 Year
  Sex: Female

DRUGS (4)
  1. PREDNISOLONE [Suspect]
     Active Substance: PREDNISOLONE
     Indication: COVID-19
     Dosage: 0.6 MILLIGRAM/KILOGRAM, DAILY
     Route: 065
  2. PREDNISOLONE [Suspect]
     Active Substance: PREDNISOLONE
     Dosage: 30 MILLIGRAM
     Route: 065
  3. BETAMETHASONE [Suspect]
     Active Substance: BETAMETHASONE
     Indication: Uveitis
     Dosage: 4 TIMES/DAY
     Route: 065
  4. VALACYCLOVIR HYDROCHLORIDE [Suspect]
     Active Substance: VALACYCLOVIR HYDROCHLORIDE
     Indication: Necrotising retinitis
     Dosage: 3000 MILLIGRAM, DAILY
     Route: 065

REACTIONS (8)
  - Necrotising retinitis [Unknown]
  - Condition aggravated [Unknown]
  - Disease progression [Unknown]
  - Retinal detachment [Unknown]
  - Glaucoma [Unknown]
  - Epstein-Barr virus infection [Unknown]
  - Hypopyon [Unknown]
  - Off label use [Unknown]
